FAERS Safety Report 23865013 (Version 1)
Quarter: 2024Q2

REPORT INFORMATION
  Report Type: Spontaneous
  Country: US (occurrence: US)
  Receive Date: 20240516
  Receipt Date: 20240516
  Transmission Date: 20240716
  Serious: No
  Sender: FDA-Public Use
  Company Number: US-CIPLA LTD.-2023US05992

PATIENT

DRUGS (3)
  1. ALBUTEROL [Suspect]
     Active Substance: ALBUTEROL
     Indication: Chronic obstructive pulmonary disease
     Dosage: 180 MCG (2 PUFFS), QD (ONCE A DAY)
     Dates: start: 20230807, end: 202309
  2. CHLOROTHIAZIDE [Concomitant]
     Active Substance: CHLOROTHIAZIDE
     Indication: Oedema
     Dosage: 25 MG, UNK
     Route: 065
  3. BENTYL [Concomitant]
     Active Substance: DICYCLOMINE HYDROCHLORIDE
     Indication: Abdominal discomfort
     Dosage: UNK, PRN (AS NEEDED)
     Route: 065

REACTIONS (5)
  - Cough [Recovered/Resolved]
  - Drug ineffective for unapproved indication [Unknown]
  - Product substitution issue [Unknown]
  - Off label use [Unknown]
  - Throat irritation [Recovered/Resolved]

NARRATIVE: CASE EVENT DATE: 20230801
